FAERS Safety Report 5988668-X (Version None)
Quarter: 2008Q4

REPORT INFORMATION
  Report Type: 
  Country: None (occurrence: None)
  Receive Date: 20081208
  Receipt Date: 20081208
  Transmission Date: 20090506
  Serious: Yes (Hospitalization)
  Sender: FDA-Public Use
  Company Number: None

PATIENT
  Sex: Male
  Weight: 80 kg

DRUGS (7)
  1. TEMOZOLOMIDE [Suspect]
     Dosage: 2660 MG
  2. ADALAT [Concomitant]
  3. COZAAR [Concomitant]
  4. DEPAKENE [Concomitant]
  5. DEXAMETHASONE TAB [Concomitant]
  6. ONDANSETRON [Concomitant]
  7. SIMVASTATIN [Concomitant]

REACTIONS (1)
  - PNEUMONIA [None]
